FAERS Safety Report 5746086-3 (Version None)
Quarter: 2008Q2

REPORT INFORMATION
  Report Type: 
  Country: None (occurrence: None)
  Receive Date: 20080522
  Receipt Date: 20071001
  Transmission Date: 20081010
  Serious: No
  Sender: FDA-Public Use
  Company Number: A0685347A

PATIENT
  Age: 84 Year
  Sex: Male

DRUGS (10)
  1. BACTROBAN [Suspect]
     Indication: WOUND
     Dosage: 1APP THREE TIMES PER DAY
     Route: 061
     Dates: start: 20070921
  2. TOPROL-XL [Concomitant]
  3. LISINOPRIL [Concomitant]
  4. CRESTOR [Concomitant]
  5. SYNTHROID [Concomitant]
  6. FLOMAX [Concomitant]
  7. XANAX [Concomitant]
  8. HYDROCHLOROTHIAZIDE [Concomitant]
  9. ASPIRIN [Concomitant]
  10. ACIPHEX [Concomitant]

REACTIONS (2)
  - APPLICATION SITE ERYTHEMA [None]
  - APPLICATION SITE IRRITATION [None]
